FAERS Safety Report 6419186-2 (Version None)
Quarter: 2009Q4

REPORT INFORMATION
  Report Type: 
  Country: None (occurrence: None)
  Receive Date: 20091028
  Receipt Date: 20091028
  Transmission Date: 20100525
  Serious: Yes (Other)
  Sender: FDA-Public Use
  Company Number: None

PATIENT
  Age: 43 Year
  Sex: Female
  Weight: 68.0396 kg

DRUGS (1)
  1. METHYLDOPA [Suspect]
     Indication: HYPERTENSION
     Dosage: 25MG 2/DAY PO
     Route: 048
     Dates: start: 20060301, end: 20090320

REACTIONS (1)
  - SYSTEMIC LUPUS ERYTHEMATOSUS [None]
